FAERS Safety Report 9701391 (Version 1)
Quarter: 2013Q4

REPORT INFORMATION
  Report Type: Spontaneous
  Country: US (occurrence: US)
  Receive Date: 20131121
  Receipt Date: 20131121
  Transmission Date: 20140711
  Serious: No
  Sender: FDA-Public Use
  Company Number: US-GILEAD-2008-0016827

PATIENT
  Sex: Male

DRUGS (4)
  1. LETAIRIS [Suspect]
     Indication: PULMONARY ARTERIAL HYPERTENSION
  2. PULMICORT [Concomitant]
     Route: 055
  3. ALBUTEROL [Concomitant]
     Dosage: PRN
     Route: 048
  4. PLAQUENIL [Concomitant]
     Route: 048

REACTIONS (1)
  - Flushing [None]
